FAERS Safety Report 7799711-X (Version None)
Quarter: 2011Q4

REPORT INFORMATION
  Report Type: 
  Country: None (occurrence: None)
  Receive Date: 20111006
  Receipt Date: 20110922
  Transmission Date: 20120403
  Serious: Yes (Hospitalization, Other)
  Sender: FDA-Public Use
  Company Number: PHHY2011BR86011

PATIENT
  Sex: Female

DRUGS (3)
  1. NPH INSULIN [Concomitant]
     Indication: DIABETES MELLITUS
     Dosage: 3 TIMES A DAY
  2. FORMOTEROL FUMARATE [Suspect]
     Indication: BRONCHITIS
     Dosage: UNK
  3. FORMOTEROL FUMARATE [Suspect]
     Indication: CHRONIC OBSTRUCTIVE PULMONARY DISEASE

REACTIONS (7)
  - MALAISE [None]
  - BLOOD GLUCOSE INCREASED [None]
  - BRONCHITIS [None]
  - BLOOD GLUCOSE DECREASED [None]
  - HYPERHIDROSIS [None]
  - ASTHENIA [None]
  - DIARRHOEA [None]
